FAERS Safety Report 20096392 (Version 7)
Quarter: 2022Q1

REPORT INFORMATION
  Report Type: Spontaneous
  Country: US (occurrence: US)
  Receive Date: 20211122
  Receipt Date: 20220328
  Transmission Date: 20220423
  Serious: Yes (Other)
  Sender: FDA-Public Use
  Company Number: US-BEH-2021138211

PATIENT
  Age: 26 Year
  Sex: Female

DRUGS (10)
  1. BERINERT [Suspect]
     Active Substance: HUMAN C1-ESTERASE INHIBITOR
     Indication: Hereditary angioedema
     Dosage: 1700 INTERNATIONAL UNIT, QW
     Route: 042
     Dates: start: 20201218
  2. BERINERT [Suspect]
     Active Substance: HUMAN C1-ESTERASE INHIBITOR
     Indication: Hereditary angioedema
     Dosage: 1700 INTERNATIONAL UNIT, QW
     Route: 042
     Dates: start: 20201218
  3. BERINERT [Suspect]
     Active Substance: HUMAN C1-ESTERASE INHIBITOR
     Indication: Prophylaxis
     Dosage: 1700 INTERNATIONAL UNIT, PRN
     Route: 042
     Dates: start: 202012
  4. BERINERT [Suspect]
     Active Substance: HUMAN C1-ESTERASE INHIBITOR
     Indication: Prophylaxis
     Dosage: 1700 INTERNATIONAL UNIT, PRN
     Route: 042
     Dates: start: 202012
  5. BERINERT [Suspect]
     Active Substance: HUMAN C1-ESTERASE INHIBITOR
     Indication: Angioedema
     Dosage: 1700 INTERNATIONAL UNIT, QW
     Route: 042
     Dates: start: 202012
  6. BERINERT [Suspect]
     Active Substance: HUMAN C1-ESTERASE INHIBITOR
     Indication: Angioedema
     Dosage: 1700 INTERNATIONAL UNIT, QW
     Route: 042
     Dates: start: 202012
  7. BERINERT [Suspect]
     Active Substance: HUMAN C1-ESTERASE INHIBITOR
     Dosage: 1700 INTERNATIONAL UNIT, QW
     Route: 042
     Dates: start: 20201217
  8. BERINERT [Suspect]
     Active Substance: HUMAN C1-ESTERASE INHIBITOR
     Dosage: 1700 INTERNATIONAL UNIT, QW
     Route: 042
     Dates: start: 20201217
  9. BERINERT [Suspect]
     Active Substance: HUMAN C1-ESTERASE INHIBITOR
     Dosage: 1700 INTERNATIONAL UNIT, QW
     Route: 042
     Dates: start: 202102
  10. BERINERT [Suspect]
     Active Substance: HUMAN C1-ESTERASE INHIBITOR
     Dosage: 1700 INTERNATIONAL UNIT, QW
     Route: 042
     Dates: start: 202102

REACTIONS (19)
  - Hereditary angioedema [Recovered/Resolved]
  - Off label use [Unknown]
  - No adverse event [Unknown]
  - Hereditary angioedema [Recovered/Resolved]
  - Hereditary angioedema [Recovered/Resolved]
  - Hereditary angioedema [Unknown]
  - Hereditary angioedema [Unknown]
  - Hereditary angioedema [Recovered/Resolved]
  - Hereditary angioedema [Recovered/Resolved]
  - Hereditary angioedema [Recovered/Resolved]
  - COVID-19 [Not Recovered/Not Resolved]
  - Hereditary angioedema [Recovered/Resolved]
  - Hereditary angioedema [Recovered/Resolved]
  - Hereditary angioedema [Recovered/Resolved]
  - Hereditary angioedema [Recovered/Resolved]
  - Dental caries [Unknown]
  - Hereditary angioedema [Recovered/Resolved]
  - Toothache [Not Recovered/Not Resolved]
  - Hereditary angioedema [Recovered/Resolved]

NARRATIVE: CASE EVENT DATE: 20211001
